FAERS Safety Report 12397780 (Version 2)
Quarter: 2016Q4

REPORT INFORMATION
  Report Type: Report from Study
  Country: US (occurrence: US)
  Receive Date: 20160524
  Receipt Date: 20161020
  Transmission Date: 20170207
  Serious: Yes (Hospitalization)
  Sender: FDA-Public Use
  Company Number: US-EISAI MEDICAL RESEARCH-EC-2016-014988

PATIENT
  Sex: Male

DRUGS (27)
  1. LENVIMA [Suspect]
     Active Substance: LENVATINIB
     Route: 048
     Dates: start: 20160330, end: 2016
  2. LENVIMA [Suspect]
     Active Substance: LENVATINIB
     Route: 048
     Dates: start: 20160407, end: 20160517
  3. VITAMIN D3 [Concomitant]
     Active Substance: CHOLECALCIFEROL
  4. PROBIOTIC [Concomitant]
     Active Substance: PROBIOTICS NOS
  5. CITRACAL+D [Concomitant]
  6. HYDRALAZINE [Concomitant]
     Active Substance: HYDRALAZINE HYDROCHLORIDE
  7. LENVIMA [Suspect]
     Active Substance: LENVATINIB
     Indication: THYROID CANCER
     Route: 048
     Dates: start: 20160227, end: 20160325
  8. SYNTHROID [Concomitant]
     Active Substance: LEVOTHYROXINE SODIUM
  9. ALLOPURINOL. [Concomitant]
     Active Substance: ALLOPURINOL
  10. OCUVITE [Concomitant]
     Active Substance: VITAMINS
  11. LOSARTAN POTASSIUM. [Concomitant]
     Active Substance: LOSARTAN POTASSIUM
  12. ZETIA [Concomitant]
     Active Substance: EZETIMIBE
  13. UNSPECIFIED PAIN MEDICINE [Concomitant]
  14. LASIX [Concomitant]
     Active Substance: FUROSEMIDE
  15. VITAMIN B12 [Concomitant]
     Active Substance: CYANOCOBALAMIN
  16. NIFEDIPINE. [Concomitant]
     Active Substance: NIFEDIPINE
  17. MAGNESIUM [Concomitant]
     Active Substance: MAGNESIUM
  18. PRAVASTATIN. [Concomitant]
     Active Substance: PRAVASTATIN
  19. ASPIRIN. [Concomitant]
     Active Substance: ASPIRIN
  20. STOOL SOFTENER (DOCUSATE SODIUM) [Concomitant]
     Active Substance: DOCUSATE SODIUM
  21. IMODIUM [Concomitant]
     Active Substance: LOPERAMIDE HYDROCHLORIDE
  22. CYANOCOBALAMIN. [Concomitant]
     Active Substance: CYANOCOBALAMIN
  23. VITAMIN C [Concomitant]
     Active Substance: ASCORBIC ACID
  24. GLUCOSAMINE-CHONDROITIN [Concomitant]
     Active Substance: CHONDROITIN SULFATE (BOVINE)\GLUCOSAMINE SULFATE
  25. FIBER THERAPY [Concomitant]
     Active Substance: METHYLCELLULOSE (4000 MPA.S)
  26. LENVIMA [Suspect]
     Active Substance: LENVATINIB
     Route: 048
     Dates: start: 2016
  27. LOSARTAN. [Concomitant]
     Active Substance: LOSARTAN

REACTIONS (16)
  - Fatigue [Not Recovered/Not Resolved]
  - Dyspepsia [Unknown]
  - Dysgeusia [Not Recovered/Not Resolved]
  - Chronic sinusitis [Not Recovered/Not Resolved]
  - Ageusia [Unknown]
  - Fall [Recovered/Resolved]
  - Cyst [Not Recovered/Not Resolved]
  - Epistaxis [Recovered/Resolved]
  - Infection [Recovered/Resolved]
  - Myalgia [Unknown]
  - Weight decreased [Not Recovered/Not Resolved]
  - Diarrhoea [Unknown]
  - Pain [Recovering/Resolving]
  - Intervertebral disc disorder [Recovered/Resolved]
  - Hypertension [Recovering/Resolving]
  - Abdominal discomfort [Unknown]

NARRATIVE: CASE EVENT DATE: 2016
